FAERS Safety Report 24904201 (Version 1)
Quarter: 2025Q1

REPORT INFORMATION
  Report Type: Spontaneous
  Country: US (occurrence: None)
  Receive Date: 20250129
  Receipt Date: 20250129
  Transmission Date: 20250409
  Serious: Yes (Hospitalization)
  Sender: FDA-CTU
  Company Number: None

PATIENT
  Age: 55 Year
  Sex: Female
  Weight: 67.5 kg

DRUGS (9)
  1. PYRIDOXINE\TIRZEPATIDE [Suspect]
     Active Substance: PYRIDOXINE\TIRZEPATIDE
     Indication: Weight control
     Route: 050
     Dates: start: 20250120, end: 20250120
  2. PYRIDOXINE\TIRZEPATIDE [Suspect]
     Active Substance: PYRIDOXINE\TIRZEPATIDE
     Indication: Autoimmune disorder
  3. PYRIDOXINE\TIRZEPATIDE [Suspect]
     Active Substance: PYRIDOXINE\TIRZEPATIDE
     Indication: Inflammation
  4. SYNTHROID [Concomitant]
     Active Substance: LEVOTHYROXINE SODIUM
  5. LIOTHYRONINE SODIUM [Concomitant]
     Active Substance: LIOTHYRONINE SODIUM
  6. LISDEXAMFETAMINE DIMESYLATE [Concomitant]
     Active Substance: LISDEXAMFETAMINE DIMESYLATE
  7. VITAMIN D3 [Concomitant]
     Active Substance: CHOLECALCIFEROL
  8. B12 FOLATE [Concomitant]
  9. P25 CREAM BIEST CREAM [Concomitant]

REACTIONS (1)
  - Anaphylactic reaction [None]

NARRATIVE: CASE EVENT DATE: 20250120
